FAERS Safety Report 9150172 (Version 1)
Quarter: 2013Q1

REPORT INFORMATION
  Report Type: Report from Study
  Country: CA (occurrence: CA)
  Receive Date: 20130308
  Receipt Date: 20130308
  Transmission Date: 20140127
  Serious: Yes (Other)
  Sender: FDA-Public Use
  Company Number: CA-JNJFOC-20130216973

PATIENT
  Sex: Female
  Weight: 90 kg

DRUGS (15)
  1. REMICADE [Suspect]
     Indication: RHEUMATOID ARTHRITIS
     Dosage: APPROXIMATELY ON AN UNSPECIFIED DATE IN 2005-2006
     Route: 042
  2. IMURAN [Concomitant]
     Route: 065
  3. MTX [Concomitant]
     Route: 065
  4. GOLD [Concomitant]
     Route: 065
  5. ASA [Concomitant]
     Route: 065
  6. PAXIL [Concomitant]
     Route: 065
  7. CYCLOBENZAPRINE [Concomitant]
     Route: 065
  8. ATENOLOL [Concomitant]
     Route: 065
  9. PRAVACOL [Concomitant]
     Route: 065
  10. METFORMIN [Concomitant]
     Route: 065
  11. HYDROCHLOROTHIAZIDE [Concomitant]
     Route: 065
  12. CELEBREX [Concomitant]
     Route: 065
  13. NEXIUM [Concomitant]
     Route: 065
  14. GLYBURIDE [Concomitant]
     Route: 065
  15. LYRICA [Concomitant]
     Route: 065

REACTIONS (2)
  - Pharyngitis [Recovered/Resolved]
  - Surgery [Unknown]
